FAERS Safety Report 9254978 (Version 2)
Quarter: 2013Q4

REPORT INFORMATION
  Report Type: Report from Study
  Country: GB (occurrence: GB)
  Receive Date: 20130425
  Receipt Date: 20131010
  Transmission Date: 20140711
  Serious: Yes (Hospitalization)
  Sender: FDA-Public Use
  Company Number: GB-ELI_LILLY_AND_COMPANY-GB201303003999

PATIENT
  Age: 80 Year
  Sex: Male
  Weight: 80.3 kg

DRUGS (11)
  1. PLACEBO [Suspect]
     Indication: MUSCLE ATROPHY
     Dosage: UNK
     Route: 042
     Dates: start: 20130308
  2. GEMCITABINE HYDROCHLORIDE [Suspect]
     Indication: MUSCLE ATROPHY
     Dosage: 1000 MG/M2, UNK
     Route: 042
     Dates: start: 20130308
  3. TRAMADOL [Concomitant]
     Dosage: 100 MG, UNK
     Route: 048
     Dates: start: 201301
  4. FINASTERIDE [Concomitant]
     Dosage: 5 MG, UNK
     Route: 048
  5. RAMIPRIL [Concomitant]
     Dosage: 10 MG, QD
     Route: 048
     Dates: start: 201212
  6. LACTULOSE [Concomitant]
     Dosage: 15 ML, PRN
     Route: 048
  7. DOMPERIDONE [Concomitant]
     Dosage: 10 MG, QD
     Route: 048
  8. ORAMORPH [Concomitant]
     Dosage: UNK, PRN
     Route: 048
     Dates: start: 201301
  9. LATANOPROST [Concomitant]
     Dosage: UNK
     Route: 047
  10. BUSCOPAN [Concomitant]
     Dosage: 20 MG, UNK
     Route: 048
  11. OMEPRAZOLE [Concomitant]
     Dosage: 20 MG, UNK
     Route: 048

REACTIONS (3)
  - Pyrexia [Recovered/Resolved]
  - Neutropenic sepsis [Recovered/Resolved]
  - Pyrexia [Recovered/Resolved]
